FAERS Safety Report 11423676 (Version 1)
Quarter: 2015Q3

REPORT INFORMATION
  Report Type: Spontaneous
  Country: US (occurrence: US)
  Receive Date: 20150827
  Receipt Date: 20150827
  Transmission Date: 20151125
  Serious: No
  Sender: FDA-Public Use
  Company Number: US-JNJFOC-20150108785

PATIENT
  Age: 53 Year
  Sex: Female
  Weight: 58.06 kg

DRUGS (3)
  1. MOTRIN IB [Suspect]
     Active Substance: IBUPROFEN
     Indication: SCIATICA
     Dosage: 2400 MG PER DAY (800 MG X3, EVERY 6 HOURS)
     Route: 048
     Dates: end: 20150112
  2. TUMS [Concomitant]
     Active Substance: CALCIUM CARBONATE
     Indication: MINERAL SUPPLEMENTATION
     Route: 065
  3. MOTRIN IB [Suspect]
     Active Substance: IBUPROFEN
     Indication: BACK PAIN
     Dosage: 2400 MG PER DAY (800 MG X3, EVERY 6 HOURS)
     Route: 048
     Dates: end: 20150112

REACTIONS (3)
  - Vertigo [Not Recovered/Not Resolved]
  - Product use issue [Unknown]
  - Incorrect dose administered [Unknown]

NARRATIVE: CASE EVENT DATE: 20150109
